FAERS Safety Report 16633681 (Version 1)
Quarter: 2019Q3

REPORT INFORMATION
  Report Type: Spontaneous
  Country: BR (occurrence: BR)
  Receive Date: 20190725
  Receipt Date: 20190725
  Transmission Date: 20191004
  Serious: Yes (Other)
  Sender: FDA-Public Use
  Company Number: BR-B.I. PHARMACEUTICALS,INC./RIDGEFIELD-2019-BI-030700

PATIENT
  Age: 94 Year
  Sex: Male
  Weight: 100 kg

DRUGS (1)
  1. SPIRIVA RESPIMAT [Suspect]
     Active Substance: TIOTROPIUM BROMIDE
     Indication: DYSPNOEA
     Route: 055
     Dates: start: 201905, end: 201907

REACTIONS (6)
  - Head injury [Recovered/Resolved]
  - Infarction [Recovered/Resolved]
  - Fall [Recovered/Resolved]
  - Carotid artery occlusion [Not Recovered/Not Resolved]
  - Syncope [Recovered/Resolved]
  - Malaise [Not Recovered/Not Resolved]

NARRATIVE: CASE EVENT DATE: 201906
